FAERS Safety Report 8935484 (Version 1)
Quarter: 2012Q4

REPORT INFORMATION
  Report Type: Spontaneous
  Country: US (occurrence: None)
  Receive Date: 20121128
  Receipt Date: 20121128
  Transmission Date: 20130627
  Serious: Yes (Hospitalization)
  Sender: FDA-Public Use
  Company Number: None

PATIENT
  Age: 55 Year
  Sex: Male
  Weight: 76.81 kg

DRUGS (4)
  1. FLEXERIL [Suspect]
     Indication: PAIN
     Dosage: tid prn spasm
CHRONIC WITH RECENT INCREASE
     Route: 048
  2. ZOLOFT [Concomitant]
  3. SAVELLA [Concomitant]
  4. NAPROSYN [Concomitant]

REACTIONS (2)
  - Encephalopathy [None]
  - Sleep disorder [None]
